FAERS Safety Report 8496532-X (Version None)
Quarter: 2012Q2

REPORT INFORMATION
  Report Type: 
  Country: None (occurrence: None)
  Receive Date: 20120629
  Receipt Date: 20120618
  Transmission Date: 20120825
  Serious: Yes (Other)
  Sender: FDA-Public Use
  Company Number: EU-2012-10178

PATIENT
  Age: 52 Year
  Sex: Male

DRUGS (4)
  1. PLETAL [Suspect]
  2. PLAIX (CLOPIDOGREL) [Concomitant]
  3. ASPIRIN [Concomitant]
  4. PROCORALAN (IVABRADINE HYDROCHLORIDE) [Concomitant]

REACTIONS (1)
  - CARDIAC FAILURE [None]
